FAERS Safety Report 8927762 (Version 1)
Quarter: 2012Q4

REPORT INFORMATION
  Report Type: 
  Country: US (occurrence: US)
  Receive Date: 20121126
  Receipt Date: 20121126
  Transmission Date: 20130627
  Serious: No
  Sender: FDA-Public Use
  Company Number: US-VERTEX PHARMACEUTICAL INC.-2012-024747

PATIENT
  Age: 61 Year
  Weight: 82 kg

DRUGS (8)
  1. INCIVEK [Suspect]
     Indication: HEPATITIS C
     Dosage: 750 mg, tid
     Route: 048
     Dates: start: 20121104
  2. RIBAVIRIN [Suspect]
     Indication: HEPATITIS C
     Dosage: 600 mg, bid
     Route: 048
     Dates: start: 20121104
  3. PEGASYS [Suspect]
     Indication: HEPATITIS C
     Dosage: 180 ?g, qw
     Route: 058
     Dates: start: 20121104
  4. PRILOSEC                           /00661201/ [Concomitant]
     Indication: GASTROOESOPHAGEAL REFLUX DISEASE
     Dosage: UNK, qd
     Route: 048
  5. VERAMAPIL [Concomitant]
     Indication: HYPERTENSION
     Dosage: 240 mg, qd
     Route: 048
  6. DOXYLAMINE SUCCINATE [Concomitant]
     Dosage: UNK, prn
     Route: 048
  7. TEMAZEPAM [Concomitant]
     Dosage: UNK, prn
     Route: 048
  8. AMITRIPTYLINE [Concomitant]
     Indication: DEPRESSION
     Dosage: UNK, qd
     Route: 048

REACTIONS (3)
  - Insomnia [Not Recovered/Not Resolved]
  - Anorectal discomfort [Not Recovered/Not Resolved]
  - Haemorrhoids [Not Recovered/Not Resolved]
